FAERS Safety Report 7480545-0 (Version None)
Quarter: 2011Q2

REPORT INFORMATION
  Report Type: 
  Country: None (occurrence: None)
  Receive Date: 20110516
  Receipt Date: 20110505
  Transmission Date: 20111010
  Serious: No
  Sender: FDA-Public Use
  Company Number: US-BIOGENIDEC-2011BI017168

PATIENT
  Age: 37 Year
  Sex: Female

DRUGS (1)
  1. AVONEX [Suspect]
     Indication: MULTIPLE SCLEROSIS
     Route: 030
     Dates: start: 20110217

REACTIONS (8)
  - BALANCE DISORDER [None]
  - DISORIENTATION [None]
  - VISION BLURRED [None]
  - DYSARTHRIA [None]
  - FATIGUE [None]
  - COGNITIVE DISORDER [None]
  - TINNITUS [None]
  - APHASIA [None]
